FAERS Safety Report 9791432 (Version 2)
Quarter: 2014Q1

REPORT INFORMATION
  Report Type: Spontaneous
  Country: US (occurrence: US)
  Receive Date: 20140101
  Receipt Date: 20140131
  Transmission Date: 20141002
  Serious: No
  Sender: FDA-Public Use
  Company Number: US-009507513-1312USA009824

PATIENT
  Age: 42 Year
  Sex: Female
  Weight: 58.96 kg

DRUGS (2)
  1. CLARITIN-D-24 [Suspect]
     Indication: SINUS CONGESTION
     Dosage: 10 MG, QD
     Route: 048
     Dates: start: 20131212, end: 20131213
  2. CLARITIN-D-24 [Suspect]
     Indication: NASOPHARYNGITIS

REACTIONS (2)
  - Condition aggravated [Recovered/Resolved]
  - Drug ineffective [Unknown]
